FAERS Safety Report 10897029 (Version 1)
Quarter: 2015Q1

REPORT INFORMATION
  Report Type: Spontaneous
  Country: US (occurrence: None)
  Receive Date: 20150302
  Receipt Date: 20150302
  Transmission Date: 20150721
  Serious: Yes (Other)
  Sender: FDA-Public Use
  Company Number: None

PATIENT
  Age: 62 Year
  Sex: Male

DRUGS (7)
  1. SYNTHROID [Concomitant]
     Active Substance: LEVOTHYROXINE SODIUM
  2. ELIQUIS [Suspect]
     Active Substance: APIXABAN
     Indication: PULMONARY EMBOLISM
     Dosage: 60  TWICE DAILY TAKEN BY MOUTH
     Route: 048
  3. MEDROL [Concomitant]
     Active Substance: METHYLPREDNISOLONE
  4. B-12 INJECTIONS [Concomitant]
  5. BENICAR [Concomitant]
     Active Substance: OLMESARTAN MEDOXOMIL
  6. CPAP [Concomitant]
     Active Substance: DEVICE
  7. LOW DOSE NALTREXONE [Concomitant]
     Active Substance: NALTREXONE

REACTIONS (11)
  - Dyspnoea [None]
  - Vision blurred [None]
  - Heart rate increased [None]
  - Appetite disorder [None]
  - Feeling abnormal [None]
  - Insomnia [None]
  - Benign prostatic hyperplasia [None]
  - Hypotension [None]
  - Food craving [None]
  - Fatigue [None]
  - Cognitive disorder [None]

NARRATIVE: CASE EVENT DATE: 20141005
